FAERS Safety Report 15489727 (Version 1)
Quarter: 2018Q4

REPORT INFORMATION
  Report Type: Spontaneous
  Country: US (occurrence: US)
  Receive Date: 20181011
  Receipt Date: 20181011
  Transmission Date: 20190205
  Serious: No
  Sender: FDA-Public Use
  Company Number: US-ALLERGAN-1768676US

PATIENT
  Sex: Female

DRUGS (1)
  1. COMBIGAN [Suspect]
     Active Substance: BRIMONIDINE TARTRATE\TIMOLOL MALEATE
     Indication: INFLAMMATION
     Route: 047

REACTIONS (4)
  - Off label use [Unknown]
  - Intraocular pressure increased [Unknown]
  - Cataract [Unknown]
  - Drug ineffective [Unknown]
